FAERS Safety Report 10028444 (Version 2)
Quarter: 2014Q2

REPORT INFORMATION
  Report Type: Spontaneous
  Country: US (occurrence: None)
  Receive Date: 20140320
  Receipt Date: 20140417
  Transmission Date: 20141212
  Serious: Yes (Hospitalization, Other)
  Sender: FDA-Public Use
  Company Number: AUR-APL-2014-03050

PATIENT
  Age: 63 Year
  Sex: Male

DRUGS (2)
  1. CLOPIDOGREL [Suspect]
     Indication: PRODUCT USED FOR UNKNOWN INDICATION
  2. ASPIRIN (ACETYLSALICULIC ACID) [Concomitant]

REACTIONS (7)
  - Weight decreased [None]
  - Hypertension [None]
  - Thrombotic thrombocytopenic purpura [None]
  - Renal arteriosclerosis [None]
  - Renal embolism [None]
  - Nephrotic syndrome [None]
  - Microangiopathic haemolytic anaemia [None]
